FAERS Safety Report 7840840-X (Version None)
Quarter: 2011Q4

REPORT INFORMATION
  Report Type: 
  Country: None (occurrence: None)
  Receive Date: 20111019
  Receipt Date: 20111019
  Transmission Date: 20120403
  Serious: Yes (Other)
  Sender: FDA-Public Use
  Company Number: None

PATIENT
  Sex: Female
  Weight: 49.8957 kg

DRUGS (1)
  1. CLINDAMYCIN [Suspect]
     Indication: TOOTH INFECTION
     Dosage: 1 TABLET Q 6 HRS BY MOUTH
     Route: 048
     Dates: start: 20110826, end: 20110902

REACTIONS (3)
  - ABDOMINAL PAIN [None]
  - ABDOMINAL DISCOMFORT [None]
  - DIARRHOEA [None]
